FAERS Safety Report 10251010 (Version 2)
Quarter: 2014Q2

REPORT INFORMATION
  Report Type: Spontaneous
  Country: US (occurrence: US)
  Receive Date: 20140620
  Receipt Date: 20140627
  Transmission Date: 20141212
  Serious: Yes (Hospitalization, Other)
  Sender: FDA-Public Use
  Company Number: US-TEVA-489064USA

PATIENT
  Age: 57 Year
  Sex: Female

DRUGS (1)
  1. COPAXONE [Suspect]
     Indication: MULTIPLE SCLEROSIS
     Dates: start: 20080601, end: 20140523

REACTIONS (5)
  - Non-Hodgkin^s lymphoma [Unknown]
  - Non-cardiac chest pain [Unknown]
  - Movement disorder [Unknown]
  - Epistaxis [Unknown]
  - Haemoptysis [Unknown]
